FAERS Safety Report 7764396-5 (Version None)
Quarter: 2011Q3

REPORT INFORMATION
  Report Type: 
  Country: None (occurrence: None)
  Receive Date: 20110921
  Receipt Date: 20110912
  Transmission Date: 20111222
  Serious: Yes (Hospitalization)
  Sender: FDA-Public Use
  Company Number: DK-B.I. PHARMACEUTICALS,INC./RIDGEFIELD-2011-SW-00364DB

PATIENT
  Sex: Female

DRUGS (14)
  1. PERSANTIN [Suspect]
     Indication: ESSENTIAL THROMBOCYTHAEMIA
     Dosage: 200 MG
     Route: 048
     Dates: start: 20030101, end: 20100313
  2. HYDROXYUREA [Suspect]
     Dosage: 1000 MG, 2000 MG OR 750 MG
     Route: 048
     Dates: start: 20100910, end: 20110107
  3. HYDROXYUREA [Suspect]
     Dosage: 1000 MG, 2000 MG OR 750 MG
     Route: 048
     Dates: start: 20110107, end: 20110210
  4. WARFARIN SODIUM [Suspect]
     Indication: ESSENTIAL THROMBOCYTHAEMIA
     Dosage: 2.5 MG OR 5 MG
     Route: 048
     Dates: start: 20040101, end: 20100313
  5. PERSANTIN [Suspect]
     Route: 048
     Dates: start: 20100507, end: 20100811
  6. PERSANTIN [Suspect]
     Route: 048
     Dates: start: 20100811
  7. NEXIUM [Concomitant]
     Dosage: 20 MG OR 40 MG
     Route: 048
     Dates: start: 20100211, end: 20100811
  8. ANAGRELIDE HCL [Suspect]
     Indication: ESSENTIAL THROMBOCYTHAEMIA
     Dosage: 2 TABS/ 3 TABS ALTERNATING
     Route: 048
     Dates: start: 20050930, end: 20100507
  9. HYDROXYUREA [Suspect]
     Indication: ESSENTIAL THROMBOCYTHAEMIA
     Dosage: 2000 MG
     Route: 048
     Dates: start: 20030710, end: 20030728
  10. HYDROXYUREA [Suspect]
     Dosage: 1000 MG
     Route: 048
     Dates: start: 20100507, end: 20100910
  11. NEXIUM [Concomitant]
     Indication: PROPHYLAXIS AGAINST GASTROINTESTINAL ULCER
     Dosage: 20 MG
     Route: 048
     Dates: start: 20030710, end: 20030928
  12. WARFARIN SODIUM [Suspect]
     Dosage: 2.5 MG OR 5 MG
     Route: 048
     Dates: start: 20100507
  13. NEXIUM [Concomitant]
     Dosage: 20 MG
     Route: 048
     Dates: start: 20061019, end: 20100211
  14. HYDROXYUREA [Suspect]
     Dosage: 1000 MG, 2000 MG OR 750 MG
     Route: 048
     Dates: start: 20110210

REACTIONS (1)
  - GASTROINTESTINAL HAEMORRHAGE [None]
